FAERS Safety Report 16731015 (Version 1)
Quarter: 2019Q4

REPORT INFORMATION
  Report Type: Spontaneous
  Country: US (occurrence: US)
  Receive Date: 20190822
  Receipt Date: 20190822
  Transmission Date: 20200122
  Serious: No
  Sender: FDA-Public Use
  Company Number: None

PATIENT
  Age: 22 Year
  Sex: Female

DRUGS (1)
  1. PROMETHAZINE [Suspect]
     Active Substance: PROMETHAZINE HYDROCHLORIDE
     Dosage: ?          OTHER FREQUENCY:X 1 DOSE;?
     Route: 042
     Dates: start: 20190821, end: 20190821

REACTIONS (4)
  - Nausea [None]
  - Exposure during pregnancy [None]
  - Abdominal pain [None]
  - Pruritus [None]

NARRATIVE: CASE EVENT DATE: 20190821
